FAERS Safety Report 14669311 (Version 3)
Quarter: 2018Q2

REPORT INFORMATION
  Report Type: Spontaneous
  Country: US (occurrence: US)
  Receive Date: 20180322
  Receipt Date: 20180613
  Transmission Date: 20180711
  Serious: Yes (Other)
  Sender: FDA-Public Use
  Company Number: US-PFIZER INC-2018120596

PATIENT
  Age: 35 Year
  Sex: Female

DRUGS (1)
  1. EUCRISA [Suspect]
     Active Substance: CRISABOROLE
     Dosage: UNK, 2X/DAY
     Route: 061
     Dates: start: 201803, end: 201803

REACTIONS (4)
  - Application site erythema [Unknown]
  - Application site swelling [Unknown]
  - Urticaria [Unknown]
  - Burning sensation [Unknown]

NARRATIVE: CASE EVENT DATE: 201803
